FAERS Safety Report 6809582-3 (Version None)
Quarter: 2010Q2

REPORT INFORMATION
  Report Type: 
  Country: None (occurrence: None)
  Receive Date: 20100630
  Receipt Date: 20100625
  Transmission Date: 20101027
  Serious: Yes (Death)
  Sender: FDA-Public Use
  Company Number: PHEH2009US17631

PATIENT
  Sex: Female

DRUGS (11)
  1. EXJADE [Suspect]
     Indication: MYELODYSPLASTIC SYNDROME
     Dosage: 1000 MG, QD
     Route: 048
     Dates: start: 20091101, end: 20100101
  2. EXJADE [Suspect]
     Indication: IRON OVERLOAD
  3. ZYRTEC [Concomitant]
     Dosage: UNK,AS NEEDED
  4. AMBIEN [Concomitant]
     Indication: INSOMNIA
     Dosage: UNK, AS NEEDED
     Route: 048
  5. COMPAZINE [Concomitant]
     Indication: NAUSEA
     Dosage: UNK, AS NEEDED
     Route: 048
  6. PAXIL [Concomitant]
     Dosage: UNK, DAILY
     Route: 048
  7. PREVACID [Concomitant]
     Dosage: UNK, DAILY
     Route: 048
  8. ATIVAN [Concomitant]
     Indication: ANXIETY
     Dosage: 0.5 MG, TID
     Route: 048
  9. NORCO [Concomitant]
     Indication: PAIN
     Route: 058
  10. TARCEVA [Concomitant]
     Indication: LUNG NEOPLASM MALIGNANT
     Dosage: 150 MG, QD
  11. PROCRIT                            /00909301/ [Concomitant]
     Indication: ANAEMIA

REACTIONS (7)
  - ACUTE MYELOID LEUKAEMIA [None]
  - ANAEMIA [None]
  - DIARRHOEA [None]
  - MALAISE [None]
  - NAUSEA [None]
  - NEOPLASM MALIGNANT [None]
  - THROMBOCYTOPENIA [None]
